FAERS Safety Report 12830136 (Version 1)
Quarter: 2016Q4

REPORT INFORMATION
  Report Type: Spontaneous
  Country: US (occurrence: US)
  Receive Date: 20161007
  Receipt Date: 20161007
  Transmission Date: 20170207
  Serious: Yes (Other)
  Sender: FDA-Public Use
  Company Number: US-SA-2016SA100850

PATIENT
  Age: 55 Year
  Sex: Female

DRUGS (5)
  1. ZANTAC [Concomitant]
     Active Substance: RANITIDINE HYDROCHLORIDE
  2. TECFIDERA [Suspect]
     Active Substance: DIMETHYL FUMARATE
     Route: 065
  3. AUBAGIO [Suspect]
     Active Substance: TERIFLUNOMIDE
     Indication: MULTIPLE SCLEROSIS
     Route: 048
  4. VITAMIN D [Concomitant]
     Active Substance: CHOLECALCIFEROL
  5. DEXILANT [Concomitant]
     Active Substance: DEXLANSOPRAZOLE

REACTIONS (5)
  - Disorientation [Unknown]
  - Diarrhoea [Not Recovered/Not Resolved]
  - Fatigue [Unknown]
  - Dysstasia [Unknown]
  - Multiple sclerosis relapse [Unknown]
